FAERS Safety Report 16277962 (Version 2)
Quarter: 2019Q4

REPORT INFORMATION
  Report Type: Spontaneous
  Country: US (occurrence: US)
  Receive Date: 20190506
  Receipt Date: 20191023
  Transmission Date: 20200122
  Serious: Yes (Hospitalization, Other)
  Sender: FDA-Public Use
  Company Number: US-ASTRAZENECA-2019SE59761

PATIENT
  Age: 52 Year
  Sex: Female
  Weight: 75.8 kg

DRUGS (49)
  1. NOVOLOG [Concomitant]
     Active Substance: INSULIN ASPART
     Indication: DIABETES MELLITUS
     Dates: start: 1999, end: 201807
  2. CYPROHEPTADINE. [Concomitant]
     Active Substance: CYPROHEPTADINE
     Dates: start: 201809
  3. FUROSEMIDE. [Concomitant]
     Active Substance: FUROSEMIDE
     Dates: start: 201903
  4. DULOXETINE. [Concomitant]
     Active Substance: DULOXETINE
     Indication: NEURALGIA
     Dates: start: 201905
  5. NEXIUM [Suspect]
     Active Substance: ESOMEPRAZOLE MAGNESIUM
     Indication: GASTROOESOPHAGEAL REFLUX DISEASE
     Route: 048
     Dates: start: 2016
  6. PROTONIX [Suspect]
     Active Substance: PANTOPRAZOLE SODIUM
     Indication: GASTROOESOPHAGEAL REFLUX DISEASE
     Dosage: GENERIC
     Route: 065
     Dates: start: 2017, end: 201904
  7. HYDROCODON [Concomitant]
     Active Substance: HYDROCODONE
     Indication: PAIN
     Dates: start: 201807
  8. NOVOLOG [Concomitant]
     Active Substance: INSULIN ASPART
     Indication: DIABETES MELLITUS
     Dates: start: 201812
  9. ATORVASTATIN [Concomitant]
     Active Substance: ATORVASTATIN
     Indication: BLOOD CHOLESTEROL INCREASED
     Dates: start: 201812
  10. ATORVASTATIN [Concomitant]
     Active Substance: ATORVASTATIN
     Indication: BLOOD CHOLESTEROL INCREASED
     Dates: start: 201905
  11. LISINOPRIL. [Concomitant]
     Active Substance: LISINOPRIL
     Indication: HYPERTENSION
     Dates: start: 201807
  12. LANTUS [Concomitant]
     Active Substance: INSULIN GLARGINE
     Indication: DIABETES MELLITUS
     Dates: start: 201812
  13. CARVEDILOL. [Concomitant]
     Active Substance: CARVEDILOL
     Dates: start: 201904
  14. AMITRIPTYLINE [Concomitant]
     Active Substance: AMITRIPTYLINE
     Indication: NERVE INJURY
     Dates: start: 201807
  15. DIGOXIN. [Concomitant]
     Active Substance: DIGOXIN
     Indication: CARDIAC DISORDER
     Dates: start: 201904
  16. CARVEDILOL. [Concomitant]
     Active Substance: CARVEDILOL
     Dates: start: 201905
  17. FLUTICASONE. [Concomitant]
     Active Substance: FLUTICASONE
     Indication: SINUS DISORDER
     Dates: start: 201904
  18. NOVOLOG [Concomitant]
     Active Substance: INSULIN ASPART
     Indication: DIABETES MELLITUS
     Dates: start: 201904
  19. ATORVASTATIN [Concomitant]
     Active Substance: ATORVASTATIN
     Indication: BLOOD CHOLESTEROL INCREASED
     Dates: start: 201807
  20. ATORVASTATIN [Concomitant]
     Active Substance: ATORVASTATIN
     Indication: BLOOD CHOLESTEROL INCREASED
     Dates: start: 201810
  21. CARVEDILOL. [Concomitant]
     Active Substance: CARVEDILOL
     Dates: start: 201903
  22. ASPIRIN. [Concomitant]
     Active Substance: ASPIRIN
     Dates: start: 201904
  23. FUROSEMIDE. [Concomitant]
     Active Substance: FUROSEMIDE
     Dates: start: 201905
  24. PROTONIX [Suspect]
     Active Substance: PANTOPRAZOLE SODIUM
     Indication: GASTROOESOPHAGEAL REFLUX DISEASE
     Route: 065
     Dates: start: 2006, end: 2018
  25. ATORVASTATIN [Concomitant]
     Active Substance: ATORVASTATIN
     Indication: BLOOD CHOLESTEROL INCREASED
     Dates: start: 201904
  26. CARVEDILOL. [Concomitant]
     Active Substance: CARVEDILOL
     Dates: start: 201807
  27. PIOGLITAZONE. [Concomitant]
     Active Substance: PIOGLITAZONE
     Dates: start: 201807
  28. PIOGLITAZONE. [Concomitant]
     Active Substance: PIOGLITAZONE
     Dates: start: 201810
  29. CYPROHEPTADINE. [Concomitant]
     Active Substance: CYPROHEPTADINE
     Dates: start: 201904
  30. NAPROXEN. [Concomitant]
     Active Substance: NAPROXEN
     Indication: PAIN
     Dates: start: 201904
  31. NEXIUM [Suspect]
     Active Substance: ESOMEPRAZOLE MAGNESIUM
     Indication: GASTROOESOPHAGEAL REFLUX DISEASE
     Route: 048
     Dates: start: 2006, end: 2018
  32. LISINOPRIL. [Concomitant]
     Active Substance: LISINOPRIL
     Indication: HYPERTENSION
     Dates: start: 201810
  33. LANTUS [Concomitant]
     Active Substance: INSULIN GLARGINE
     Indication: DIABETES MELLITUS
     Dates: start: 201807
  34. GABAPENTIN. [Concomitant]
     Active Substance: GABAPENTIN
     Indication: NEURALGIA
     Dates: start: 201812
  35. CYPROHEPTADINE. [Concomitant]
     Active Substance: CYPROHEPTADINE
     Dates: start: 201807
  36. ASPIRIN. [Concomitant]
     Active Substance: ASPIRIN
     Dates: start: 201903
  37. DIGOXIN. [Concomitant]
     Active Substance: DIGOXIN
     Indication: CARDIAC DISORDER
     Dates: start: 201905
  38. NAPROXEN. [Concomitant]
     Active Substance: NAPROXEN
     Indication: INFLAMMATION
     Dates: start: 201904
  39. MEGESTROL [Concomitant]
     Active Substance: MEGESTROL
     Dates: start: 201905
  40. DULOXETINE. [Concomitant]
     Active Substance: DULOXETINE
     Indication: NEURALGIA
     Dates: start: 201904
  41. NOVOLOG [Concomitant]
     Active Substance: INSULIN ASPART
     Indication: DIABETES MELLITUS
     Dates: start: 201905
  42. CIPROFLOXACIN. [Concomitant]
     Active Substance: CIPROFLOXACIN
     Dates: start: 201904
  43. LISINOPRIL. [Concomitant]
     Active Substance: LISINOPRIL
     Indication: HYPERTENSION
     Dates: start: 201904
  44. LANTUS [Concomitant]
     Active Substance: INSULIN GLARGINE
     Indication: DIABETES MELLITUS
     Dates: start: 201904
  45. GABAPENTIN. [Concomitant]
     Active Substance: GABAPENTIN
     Indication: NEURALGIA
     Dates: start: 201807
  46. GABAPENTIN. [Concomitant]
     Active Substance: GABAPENTIN
     Indication: NEURALGIA
     Dates: start: 201809
  47. AMITRIPTYLINE [Concomitant]
     Active Substance: AMITRIPTYLINE
     Indication: NERVE INJURY
     Dates: start: 201810
  48. AMITRIPTYLINE [Concomitant]
     Active Substance: AMITRIPTYLINE
     Indication: NERVE INJURY
     Dates: start: 201812
  49. FUROSEMIDE. [Concomitant]
     Active Substance: FUROSEMIDE
     Dates: start: 201904

REACTIONS (2)
  - Acute kidney injury [Unknown]
  - Chronic kidney disease [Not Recovered/Not Resolved]

NARRATIVE: CASE EVENT DATE: 2017
